FAERS Safety Report 21784357 (Version 1)
Quarter: 2022Q4

REPORT INFORMATION
  Report Type: Report from Study
  Country: CN (occurrence: CN)
  Receive Date: 20221227
  Receipt Date: 20221227
  Transmission Date: 20230113
  Serious: Yes (Death, Hospitalization)
  Sender: FDA-Public Use
  Company Number: CN-JNJFOC-20221243113

PATIENT

DRUGS (3)
  1. CANAGLIFLOZIN [Suspect]
     Active Substance: CANAGLIFLOZIN
     Indication: Product used for unknown indication
     Route: 048
  2. METFORMIN [Suspect]
     Active Substance: METFORMIN HYDROCHLORIDE
     Indication: Product used for unknown indication
     Route: 065
  3. INSULIN NOS [Suspect]
     Active Substance: INSULIN NOS
     Indication: Product used for unknown indication
     Route: 065

REACTIONS (9)
  - Pancreatitis acute [Fatal]
  - Pancreatitis necrotising [Unknown]
  - Pancreatitis [Unknown]
  - Pancreas infection [Unknown]
  - Haemorrhagic necrotic pancreatitis [Unknown]
  - Pancreatitis haemorrhagic [Unknown]
  - Ischaemic pancreatitis [Unknown]
  - Pancreatic abscess [Unknown]
  - Pancreatic phlegmon [Unknown]
